FAERS Safety Report 17589404 (Version 2)
Quarter: 2021Q2

REPORT INFORMATION
  Report Type: Spontaneous
  Country: US (occurrence: US)
  Receive Date: 20200327
  Receipt Date: 20210413
  Transmission Date: 20210716
  Serious: No
  Sender: FDA-Public Use
  Company Number: US-ALLERGAN-1936225US

PATIENT
  Age: 57 Year
  Sex: Female
  Weight: 54.43 kg

DRUGS (1)
  1. LATISSE [Suspect]
     Active Substance: BIMATOPROST
     Indication: GROWTH OF EYELASHES
     Dosage: 1 DROP TO EACH EYE LID (AS PER INSTRUCTION)

REACTIONS (2)
  - Ocular hyperaemia [Unknown]
  - Eyelid irritation [Unknown]
